FAERS Safety Report 10462944 (Version 2)
Quarter: 2015Q2

REPORT INFORMATION
  Report Type: Report from Study
  Country: US (occurrence: US)
  Receive Date: 20140918
  Receipt Date: 20150528
  Transmission Date: 20150821
  Serious: No
  Sender: FDA-Public Use
  Company Number: US-AMGEN-USASP2014069693

PATIENT
  Age: 38 Year
  Sex: Male

DRUGS (1)
  1. ENBREL [Suspect]
     Active Substance: ETANERCEPT
     Indication: RHEUMATOID ARTHRITIS
     Dosage: 50 MG, QWK
     Route: 058
     Dates: start: 20140606

REACTIONS (4)
  - Injection site pruritus [Unknown]
  - Injection site reaction [Unknown]
  - Injection site erythema [Unknown]
  - Injection site urticaria [Unknown]

NARRATIVE: CASE EVENT DATE: 2014
